FAERS Safety Report 19877289 (Version 6)
Quarter: 2024Q4

REPORT INFORMATION
  Report Type: Report from Study
  Country: US (occurrence: US)
  Receive Date: 20210923
  Receipt Date: 20241002
  Transmission Date: 20250115
  Serious: Yes (Hospitalization, Other)
  Sender: TAKEDA
  Company Number: US-SHIRE-US202018033

PATIENT
  Age: 63 Year
  Sex: Female

DRUGS (1)
  1. HUMAN IMMUNOGLOBULIN G [Suspect]
     Active Substance: HUMAN IMMUNOGLOBULIN G
     Indication: Primary immunodeficiency syndrome
     Dosage: UNK, Q2WEEKS
     Route: 058

REACTIONS (11)
  - Weight decreased [Unknown]
  - Hypotonia [Unknown]
  - Gait disturbance [Recovering/Resolving]
  - Autonomic failure syndrome [Unknown]
  - Infection [Recovered/Resolved]
  - Poor venous access [Unknown]
  - Feeling abnormal [Unknown]
  - Malaise [Unknown]
  - COVID-19 [Unknown]
  - Tooth infection [Unknown]
  - Liver disorder [Unknown]

NARRATIVE: CASE EVENT DATE: 20220501
